FAERS Safety Report 9464825 (Version 2)
Quarter: 2013Q4

REPORT INFORMATION
  Report Type: Spontaneous
  Country: FR (occurrence: FR)
  Receive Date: 20130819
  Receipt Date: 20131021
  Transmission Date: 20140711
  Serious: Yes (Other)
  Sender: FDA-Public Use
  Company Number: FR-JNJFOC-20130806095

PATIENT
  Age: 66 Year
  Sex: Male

DRUGS (2)
  1. REMICADE [Suspect]
     Indication: PSORIASIS
     Dosage: FOR 5 MONTHS
     Route: 042
     Dates: start: 20110505, end: 201110
  2. HUMIRA [Suspect]
     Indication: PSORIASIS
     Dosage: FOR 8 MONTHS
     Route: 058
     Dates: start: 201110, end: 201206

REACTIONS (3)
  - Renal mass [Not Recovered/Not Resolved]
  - Haematuria [Not Recovered/Not Resolved]
  - Eczema [Unknown]
